FAERS Safety Report 23578356 (Version 1)
Quarter: 2024Q1

REPORT INFORMATION
  Report Type: Spontaneous
  Country: US (occurrence: US)
  Receive Date: 20240229
  Receipt Date: 20240229
  Transmission Date: 20240410
  Serious: Yes (Other)
  Sender: FDA-Public Use
  Company Number: US-SEATTLE GENETICS-2024SGN01851

PATIENT
  Age: 47 Year
  Sex: Female

DRUGS (4)
  1. TIVDAK [Suspect]
     Active Substance: TISOTUMAB VEDOTIN-TFTV
     Indication: Cervix carcinoma
     Dosage: Q21D
     Route: 065
     Dates: start: 202306
  2. BRIMONIDINE [Concomitant]
     Active Substance: BRIMONIDINE TARTRATE
     Indication: Vasoconstriction
     Route: 047
  3. CORTICOSTEROID NOS [Concomitant]
     Active Substance: CORTICOSTEROID NOS
     Indication: Product used for unknown indication
     Route: 047
  4. CISPLATIN [Concomitant]
     Active Substance: CISPLATIN
     Indication: Cervix carcinoma
     Route: 065

REACTIONS (2)
  - Herpes ophthalmic [Unknown]
  - Dry eye [Unknown]

NARRATIVE: CASE EVENT DATE: 20231101
